FAERS Safety Report 14934973 (Version 1)
Quarter: 2018Q2

REPORT INFORMATION
  Report Type: Spontaneous
  Country: None (occurrence: CM)
  Receive Date: 20180524
  Receipt Date: 20180524
  Transmission Date: 20180711
  Serious: Yes (Other)
  Sender: FDA-Public Use
  Company Number: CM-POPULATION COUNCIL, INC.-2048408

PATIENT
  Age: 31 Year
  Sex: Female
  Weight: 72 kg

DRUGS (1)
  1. JADELLE [Suspect]
     Active Substance: LEVONORGESTREL
     Indication: CONTRACEPTION
     Route: 059

REACTIONS (3)
  - Pregnancy with implant contraceptive [None]
  - Anembryonic gestation [None]
  - Drug ineffective [None]
